FAERS Safety Report 11297182 (Version 1)
Quarter: 2015Q3

REPORT INFORMATION
  Report Type: Spontaneous
  Country: US (occurrence: US)
  Receive Date: 20150722
  Receipt Date: 20150722
  Transmission Date: 20151125
  Serious: Yes (Other)
  Sender: FDA-Public Use
  Company Number: US-ELI_LILLY_AND_COMPANY-US201103001572

PATIENT
  Sex: Female
  Weight: 71.66 kg

DRUGS (5)
  1. CENTRUM SILVER [Concomitant]
     Active Substance: VITAMINS
     Dosage: 1 DF, UNK
  2. EVISTA [Suspect]
     Active Substance: RALOXIFENE HYDROCHLORIDE
     Indication: OSTEOPOROSIS
     Dosage: 60 MG, DAILY (1/D)
     Dates: start: 20100728, end: 20110302
  3. ESTRACE [Concomitant]
     Active Substance: ESTRADIOL
     Dosage: 1 DF, UNK
  4. OSCAL 500-D [Concomitant]
     Dosage: 1 DF, UNK
  5. ZYRTEC [Concomitant]
     Active Substance: CETIRIZINE HYDROCHLORIDE
     Dosage: 1 DF, UNK

REACTIONS (1)
  - Retinal vein occlusion [Unknown]
